FAERS Safety Report 21359677 (Version 1)
Quarter: 2022Q3

REPORT INFORMATION
  Report Type: Spontaneous
  Country: DE (occurrence: DE)
  Receive Date: 20220921
  Receipt Date: 20220921
  Transmission Date: 20221027
  Serious: Yes (Hospitalization)
  Sender: FDA-Public Use
  Company Number: DE-ADRED-04592-03

PATIENT
  Age: 72 Year
  Sex: Male
  Weight: 65 kg

DRUGS (13)
  1. ETORICOXIB [Suspect]
     Active Substance: ETORICOXIB
     Dosage: 90 MG, QD, 1-0-0-0, TABLETS
     Route: 048
  2. CABAZITAXEL [Suspect]
     Active Substance: CABAZITAXEL
     Dosage: 20 MG/ML, Q3W
     Route: 042
  3. CALCIUMACETAT-NEFRO [Concomitant]
     Dosage: 500 MG, TID, 1-1-1-0, TABLETS
     Route: 048
  4. OXYCODONE [Concomitant]
     Active Substance: OXYCODONE
     Dosage: 40 MG, BID 40 MG, 1-0-1-0, PROLONGED-RELEASE TABLETS
     Route: 048
  5. FERROUS GLYCINE SULFATE [Concomitant]
     Active Substance: FERROUS GLYCINE SULFATE
     Dosage: 1-0-0-0, CAPSULES
     Route: 048
  6. MIRTAZAPINE [Concomitant]
     Active Substance: MIRTAZAPINE
     Dosage: 15 MG, QD, 0-0-0-1, TABLETS
     Route: 048
  7. PANTOPRAZOLE [Concomitant]
     Active Substance: PANTOPRAZOLE
     Dosage: 20 MG, QD,  1-0-0-0, TABLETS
     Route: 048
  8. LIPEGFILGRASTIM [Concomitant]
     Active Substance: LIPEGFILGRASTIM
     Dosage: UNK, Q3W
     Route: 058
  9. PREGABALIN [Concomitant]
     Active Substance: PREGABALIN
     Dosage: 150 MG, BID,  1-0-1-0, CAPSULES
     Route: 048
  10. OXYCODONE [Concomitant]
     Active Substance: OXYCODONE
     Dosage: 10 MG, AS NEEDED, CAPSULES
     Route: 048
  11. METAMIZOLE [Concomitant]
     Active Substance: METAMIZOLE
     Dosage: 500 MG/ML, AS REQUIRED, DROPS
     Route: 048
  12. PREDNISOLONE [Concomitant]
     Active Substance: PREDNISOLONE
     Dosage: 5 MG, 2-0-0-0, TABLETS
     Route: 048
  13. CHOLECALCIFEROL [Concomitant]
     Active Substance: CHOLECALCIFEROL
     Dosage: 20000 IU, QW, ON SATURDAYS, TABLETS
     Route: 048

REACTIONS (6)
  - General physical health deterioration [Unknown]
  - Urinary hesitation [Unknown]
  - Anaemia [Unknown]
  - Fatigue [Unknown]
  - Product prescribing error [Unknown]
  - Micturition frequency decreased [Unknown]
